FAERS Safety Report 5358354-8 (Version None)
Quarter: 2007Q2

REPORT INFORMATION
  Report Type: 
  Country: None (occurrence: None)
  Receive Date: 20070615
  Receipt Date: 20070605
  Transmission Date: 20071010
  Serious: Yes (Death, Other)
  Sender: FDA-Public Use
  Company Number: JP-JNJFOC-20040304102

PATIENT
  Sex: Female
  Weight: 49 kg

DRUGS (20)
  1. REMICADE [Suspect]
     Indication: RHEUMATOID ARTHRITIS
     Route: 041
     Dates: start: 20040122
  2. RHEUMATREX [Suspect]
     Indication: DRUG USE FOR UNKNOWN INDICATION
     Route: 048
     Dates: start: 20020201, end: 20040206
  3. GASTER [Concomitant]
     Route: 042
  4. FOLIAMIN [Concomitant]
     Dosage: IV 10-FEB-04 TO 12-FEB-04
     Route: 048
  5. PREDISONE [Concomitant]
     Route: 048
  6. RINDERON [Concomitant]
     Route: 042
  7. SOLU-MEDROL [Concomitant]
     Route: 042
  8. LOXONIN [Concomitant]
     Route: 048
  9. VOLTAREN [Concomitant]
     Route: 050
  10. BENET [Concomitant]
     Route: 048
  11. DORAL [Concomitant]
     Route: 048
  12. AMLODIN [Concomitant]
     Route: 048
  13. MICARDIS [Concomitant]
     Route: 048
  14. PURSENNID [Concomitant]
     Route: 048
  15. STREPTOMYCIN [Concomitant]
     Route: 048
  16. MAGNESIUM SULFATE [Concomitant]
     Route: 048
  17. ISONIAZID [Concomitant]
     Route: 048
  18. PALUX [Concomitant]
  19. CYANOCOBALAMIN [Concomitant]
     Route: 042
  20. HALCION [Concomitant]

REACTIONS (5)
  - CYTOMEGALOVIRUS INFECTION [None]
  - DISSEMINATED INTRAVASCULAR COAGULATION [None]
  - PANCYTOPENIA [None]
  - RENAL INJURY [None]
  - RESPIRATORY FAILURE [None]
